FAERS Safety Report 4542489-3 (Version None)
Quarter: 2004Q4

REPORT INFORMATION
  Report Type: 
  Country: None (occurrence: None)
  Receive Date: 20041227
  Receipt Date: 20041216
  Transmission Date: 20050328
  Serious: Yes (Other)
  Sender: FDA-Public Use
  Company Number: 2004114504

PATIENT
  Age: 57 Year
  Sex: Male

DRUGS (11)
  1. CEREBYX [Suspect]
     Indication: EPILEPSY
     Dosage: 300 MG (2 MG/ML 3 IN 1 D) INTRAVENOUS
     Route: 042
     Dates: start: 20041210
  2. ACYCLOVIR [Concomitant]
  3. ACETYLCYSTEINE [Concomitant]
  4. AZTREONAM(AZTREONAM) [Concomitant]
  5. FOLIC ACID [Concomitant]
  6. VITAMINS(VITAMINS) [Concomitant]
  7. INSULIN [Concomitant]
  8. SALBUTAMOL(SALBUTAMOL) [Concomitant]
  9. LANSORPAZOLE (LANSOPRAZOLE) [Concomitant]
  10. LINEZOLID (LINEZOLID) [Concomitant]
  11. METHYLPREDNISOLONE [Concomitant]

REACTIONS (2)
  - ANTICONVULSANT DRUG LEVEL BELOW THERAPEUTIC [None]
  - PHARMACEUTICAL PRODUCT COMPLAINT [None]
